FAERS Safety Report 11124515 (Version 1)
Quarter: 2015Q2

REPORT INFORMATION
  Report Type: Spontaneous
  Country: US (occurrence: None)
  Receive Date: 20150518
  Receipt Date: 20150518
  Transmission Date: 20150821
  Serious: Yes (Hospitalization, Other)
  Sender: FDA-Public Use
  Company Number: ADR-2015-00665

PATIENT
  Age: 60 Year
  Sex: Male

DRUGS (9)
  1. LIORESAL [Suspect]
     Active Substance: BACLOFEN
     Indication: MUSCLE SPASTICITY
     Dosage: 165.16
  2. GABAPENTIN. [Suspect]
     Active Substance: GABAPENTIN
  3. BENAZEPRIL [Suspect]
     Active Substance: BENAZEPRIL\BENAZEPRIL HYDROCHLORIDE
  4. CHLORTHALIDONE. [Suspect]
     Active Substance: CHLORTHALIDONE
  5. DULOXETINE [Suspect]
     Active Substance: DULOXETINE
  6. ATORVASTATIN [Suspect]
     Active Substance: ATORVASTATIN
  7. METFORMIN [Suspect]
     Active Substance: METFORMIN HYDROCHLORIDE
  8. NORCO [Suspect]
     Active Substance: ACETAMINOPHEN\HYDROCODONE BITARTRATE
  9. BYSTOLIC [Suspect]
     Active Substance: NEBIVOLOL HYDROCHLORIDE

REACTIONS (10)
  - Headache [None]
  - Muscle spasticity [None]
  - Myocardial infarction [None]
  - Device malfunction [None]
  - Incision site erythema [None]
  - Dyspnoea [None]
  - Implant site infection [None]
  - Serratia test positive [None]
  - Pain [None]
  - Device related infection [None]
